FAERS Safety Report 9388933 (Version 3)
Quarter: 2013Q3

REPORT INFORMATION
  Report Type: Spontaneous
  Country: US (occurrence: US)
  Receive Date: 20130708
  Receipt Date: 20130823
  Transmission Date: 20140515
  Serious: Yes (Hospitalization)
  Sender: FDA-Public Use
  Company Number: US-B.I. PHARMACEUTICALS,INC./RIDGEFIELD-2013-BI-19415BP

PATIENT
  Age: 77 Year
  Sex: Male
  Weight: 118 kg

DRUGS (24)
  1. PRADAXA [Suspect]
     Indication: CEREBROVASCULAR ACCIDENT PROPHYLAXIS
     Dosage: 300 MG
     Route: 048
     Dates: start: 20130320
  2. PRADAXA [Suspect]
     Indication: ATRIAL FIBRILLATION
     Dosage: 300 MG
     Route: 048
     Dates: start: 201204, end: 20130303
  3. PRADAXA [Suspect]
     Dosage: 300 MG
     Route: 048
     Dates: start: 201203, end: 201204
  4. PRADAXA [Suspect]
     Dosage: 300 MG
     Route: 048
     Dates: start: 201105
  5. METOPROLOL [Concomitant]
     Indication: HYPERTENSION
     Dosage: 12.5 MG
     Route: 048
     Dates: start: 2008
  6. SPIRONOLACTONE [Concomitant]
     Indication: FLUID RETENTION
     Dosage: 25 MG
     Route: 048
     Dates: start: 2008
  7. ZETIA [Concomitant]
     Indication: BLOOD CHOLESTEROL INCREASED
     Dosage: 10 MG
     Route: 048
     Dates: start: 200109
  8. OCUVITE [Concomitant]
     Indication: MACULAR DEGENERATION
     Dosage: 1 ANZ
     Route: 048
     Dates: start: 2012
  9. SIMVASTATIN [Concomitant]
     Indication: BLOOD CHOLESTEROL INCREASED
     Dosage: 20 MG
     Route: 048
     Dates: start: 201204
  10. CALCITROL [Concomitant]
     Indication: THYROIDECTOMY
     Dosage: 1 MCG
     Route: 048
     Dates: start: 201204
  11. LISINOPRIL [Concomitant]
     Indication: HYPERTENSION
     Dosage: 2.5 MG
     Route: 048
     Dates: start: 201204
  12. FINASTERIDE [Concomitant]
     Indication: PROSTATOMEGALY
     Dosage: 5 MG
     Route: 048
     Dates: start: 2008
  13. CYTOMEL [Concomitant]
     Indication: THYROIDECTOMY
     Dosage: 25 MCG
     Route: 048
     Dates: start: 201204
  14. NIACIN [Concomitant]
     Indication: BLOOD CHOLESTEROL INCREASED
     Dosage: 1000 MG
     Route: 048
     Dates: start: 2008
  15. VITAMIN D3 [Concomitant]
     Indication: SUPPLEMENTATION THERAPY
     Dosage: 1 ANZ
     Route: 048
     Dates: start: 2003
  16. COQ-10 [Concomitant]
     Indication: SUPPLEMENTATION THERAPY
     Dosage: 1 ANZ
     Route: 048
     Dates: start: 2003
  17. ALEVE [Concomitant]
  18. LYRICA [Concomitant]
  19. K-CLUR [Concomitant]
  20. RANEXA [Concomitant]
  21. PROSCAR [Concomitant]
  22. SYNTHROID [Concomitant]
  23. TORSEMIDE [Concomitant]
  24. XARELTO [Concomitant]

REACTIONS (7)
  - Thyroid cancer [Not Recovered/Not Resolved]
  - Muscle spasms [Recovered/Resolved]
  - Haemorrhage urinary tract [Recovered/Resolved]
  - Prostatomegaly [Recovered/Resolved]
  - Constipation [Not Recovered/Not Resolved]
  - Dyspepsia [Not Recovered/Not Resolved]
  - Lip swelling [Recovered/Resolved]
